FAERS Safety Report 5342837-0 (Version None)
Quarter: 2007Q2

REPORT INFORMATION
  Report Type: 
  Country: None (occurrence: None)
  Receive Date: 20070601
  Receipt Date: 20070524
  Transmission Date: 20071010
  Serious: Yes (Life-Threatening, Hospitalization)
  Sender: FDA-Public Use
  Company Number: CZ-GENENTECH-241965

PATIENT
  Sex: Male

DRUGS (4)
  1. RITUXIMAB [Suspect]
     Indication: B-CELL LYMPHOMA
  2. CARBOPLATIN [Suspect]
     Indication: B-CELL LYMPHOMA
  3. IFOSFAMIDE [Suspect]
     Indication: B-CELL LYMPHOMA
  4. ETOPOSIDE [Suspect]
     Indication: B-CELL LYMPHOMA

REACTIONS (2)
  - ARRHYTHMIA [None]
  - LEUKOENCEPHALOPATHY [None]
